FAERS Safety Report 18955785 (Version 5)
Quarter: 2022Q4

REPORT INFORMATION
  Report Type: Spontaneous
  Country: US (occurrence: US)
  Receive Date: 20210301
  Receipt Date: 20221013
  Transmission Date: 20230112
  Serious: Yes (Hospitalization)
  Sender: FDA-Public Use
  Company Number: US-PFIZER INC-2020074134

PATIENT
  Age: 67 Year
  Sex: Male
  Weight: 88.9 kg

DRUGS (4)
  1. RAPAMUNE [Suspect]
     Active Substance: SIROLIMUS
     Indication: Renal transplant
     Dosage: 1 MG, 1X/DAY
     Route: 048
     Dates: start: 2011, end: 20200215
  2. RAPAMUNE [Suspect]
     Active Substance: SIROLIMUS
     Dosage: 1 MG, DAILY (TWO 0.5MG RAPAMUNE TABLETS BY MOUTH EVERY SUNDAY, MONDAY, WEDNESDAY AND FRIDAY)
  3. RAPAMUNE [Suspect]
     Active Substance: SIROLIMUS
     Dosage: 0.5 MG (0.5MG RAPAMUNE TABLET BY MOUTH EVERY TUESDAY, THURSDAY, AND SATURDAY )
  4. IMURAN [Concomitant]
     Active Substance: AZATHIOPRINE
     Dosage: 75 MG, DAILY

REACTIONS (1)
  - COVID-19 [Unknown]
